FAERS Safety Report 16652470 (Version 1)
Quarter: 2019Q3

REPORT INFORMATION
  Report Type: Spontaneous
  Country: US (occurrence: US)
  Receive Date: 20190617
  Receipt Date: 20190617
  Transmission Date: 20191004
  Serious: Yes (Other)
  Sender: FDA-Public Use
  Company Number: None

PATIENT
  Age: 57 Year
  Sex: Female

DRUGS (3)
  1. SNOW SHARK 100MG THC CAPSULES [Suspect]
     Active Substance: DRONABINOL
     Indication: ANXIETY
     Route: 048
     Dates: start: 20190402
  2. 100MG THC [Suspect]
     Active Substance: DRONABINOL
  3. SNOW SHARK 100MG THC CAPSULES [Suspect]
     Active Substance: DRONABINOL
     Indication: INSOMNIA

REACTIONS (3)
  - Head injury [None]
  - Aphasia [None]
  - Fall [None]

NARRATIVE: CASE EVENT DATE: 20190402
